FAERS Safety Report 5273291-5 (Version None)
Quarter: 2007Q1

REPORT INFORMATION
  Report Type: 
  Country: None (occurrence: None)
  Receive Date: 20070319
  Receipt Date: 20070307
  Transmission Date: 20070707
  Serious: Yes (Hospitalization)
  Sender: FDA-Public Use
  Company Number: 2005-08-0254

PATIENT
  Age: 67 Year
  Sex: Male
  Weight: 56 kg

DRUGS (7)
  1. PEG-INTRON [Suspect]
     Indication: HEPATITIS C
     Dosage: SEE IMAGE
     Route: 058
     Dates: start: 20050608, end: 20050624
  2. PEG-INTRON [Suspect]
     Indication: HEPATITIS C
     Dosage: SEE IMAGE
     Route: 058
     Dates: start: 20050701, end: 20050701
  3. PEG-INTRON [Suspect]
     Indication: HEPATITIS C
     Dosage: SEE IMAGE
     Route: 058
     Dates: start: 20050708, end: 20050708
  4. REBETOL [Suspect]
     Indication: HEPATITIS C
     Dosage: 800 MG; ; PO
     Route: 048
     Dates: start: 20050608, end: 20050708
  5. AMLODIOPINE [Concomitant]
  6. ACARBOSE [Concomitant]
  7. INSULIN HUMAN [Concomitant]

REACTIONS (6)
  - CELLULITIS [None]
  - DEEP VEIN THROMBOSIS [None]
  - HYPOCOAGULABLE STATE [None]
  - NEUTROPHIL COUNT DECREASED [None]
  - PLATELET COUNT DECREASED [None]
  - PLATELET COUNT INCREASED [None]
